FAERS Safety Report 7830663-X (Version None)
Quarter: 2011Q4

REPORT INFORMATION
  Report Type: 
  Country: None (occurrence: None)
  Receive Date: 20111021
  Receipt Date: 20111020
  Transmission Date: 20120403
  Serious: Yes (Life-Threatening, Hospitalization, Other)
  Sender: FDA-Public Use
  Company Number: US-PFIZER INC-2006029165

PATIENT
  Sex: Female
  Weight: 88.45 kg

DRUGS (6)
  1. EPINASTINE HYDROCHLORIDE [Concomitant]
     Indication: EYE SWELLING
  2. EPINASTINE HYDROCHLORIDE [Concomitant]
     Indication: EYE PRURITUS
  3. LOTREL [Concomitant]
     Indication: HYPERTENSION
     Route: 048
     Dates: start: 19950915
  4. EPINASTINE HYDROCHLORIDE [Concomitant]
     Indication: LACRIMATION INCREASED
     Route: 047
     Dates: start: 20040515
  5. SUNITINIB MALATE [Suspect]
     Indication: GASTROINTESTINAL STROMAL TUMOUR
     Dosage: 50 MG, 1X/DAY
     Route: 048
     Dates: start: 20050809, end: 20060202
  6. ZIAC [Concomitant]
     Indication: HYPERTENSION
     Route: 048
     Dates: start: 19950915

REACTIONS (3)
  - IMPAIRED HEALING [None]
  - HYPOTENSION [None]
  - SEPSIS [None]
